FAERS Safety Report 5868662-X (Version None)
Quarter: 2008Q3

REPORT INFORMATION
  Report Type: 
  Country: None (occurrence: None)
  Receive Date: 20080903
  Receipt Date: 20080822
  Transmission Date: 20090109
  Serious: Yes (Other)
  Sender: FDA-Public Use
  Company Number: PHHY2008FR18897

PATIENT
  Age: 32 Year
  Sex: Male

DRUGS (2)
  1. LAMISIL [Suspect]
     Route: 048
  2. ASPIRIN [Concomitant]

REACTIONS (1)
  - PURPURA [None]
